FAERS Safety Report 8156409-6 (Version None)
Quarter: 2012Q1

REPORT INFORMATION
  Report Type: 
  Country: None (occurrence: None)
  Receive Date: 20120222
  Receipt Date: 20120215
  Transmission Date: 20120608
  Serious: Yes (Hospitalization)
  Sender: FDA-Public Use
  Company Number: FR-UCBSA-051531

PATIENT
  Age: 61 Year
  Sex: Female

DRUGS (6)
  1. NEUPRO [Suspect]
     Route: 062
     Dates: start: 20120127, end: 20120127
  2. PRAMIPEXOLE DIHYDROCHLORIDE [Concomitant]
  3. AZILECT [Concomitant]
  4. STABLON [Concomitant]
  5. PRAMIPEXOLE DIHYDROCHLORIDE [Concomitant]
     Dates: start: 20120101
  6. EXFORGE [Concomitant]

REACTIONS (2)
  - BRADYCARDIA [None]
  - HYPOTENSION [None]
